FAERS Safety Report 8018316-9 (Version None)
Quarter: 2012Q1

REPORT INFORMATION
  Report Type: 
  Country: None (occurrence: None)
  Receive Date: 20120103
  Receipt Date: 20111229
  Transmission Date: 20120608
  Serious: Yes (Other)
  Sender: FDA-Public Use
  Company Number: FR-B.I. PHARMACEUTICALS,INC./RIDGEFIELD-2011-FF-01240FF

PATIENT
  Age: 62 Year
  Sex: Female

DRUGS (9)
  1. PRADAXA [Suspect]
     Indication: KNEE ARTHROPLASTY
     Dosage: 220 MG
     Route: 048
     Dates: start: 20111130, end: 20111212
  2. LASIX [Concomitant]
     Route: 048
  3. PANTOPRAZOLE SODIUM [Concomitant]
     Route: 048
  4. FEMARA [Concomitant]
  5. XANAX [Concomitant]
     Route: 048
  6. PERINDOPRIL ERBUMINE [Concomitant]
     Route: 048
  7. EFFEXOR [Concomitant]
     Route: 048
  8. PRAZEPAM [Concomitant]
     Route: 048
  9. TRIMEPRAZINE TARTRATE [Concomitant]

REACTIONS (1)
  - AGRANULOCYTOSIS [None]
